FAERS Safety Report 15751298 (Version 2)
Quarter: 2019Q1

REPORT INFORMATION
  Report Type: Spontaneous
  Country: BE (occurrence: BE)
  Receive Date: 20181221
  Receipt Date: 20190114
  Transmission Date: 20190417
  Serious: Yes (Other)
  Sender: FDA-Public Use
  Company Number: BE-JUBILANT CADISTA PHARMACEUTICALS-2018JUB00535

PATIENT
  Age: 89 Year
  Sex: Male

DRUGS (16)
  1. DUOVENT ^HFA FL AERO DOS 200^ [Concomitant]
     Dosage: 200 UNK
     Route: 065
  2. TAMSULOSIN ^EG COMP^ [Concomitant]
     Dosage: 0.4 MG, 1X/DAY
     Route: 065
  3. SPIRONOLACTONE. [Suspect]
     Active Substance: SPIRONOLACTONE
     Indication: HYPERTENSION
  4. ABIRATERONE ACETATE. [Suspect]
     Active Substance: ABIRATERONE ACETATE
     Indication: HORMONE-REFRACTORY PROSTATE CANCER
     Dosage: 1000 MG
     Route: 065
     Dates: start: 20180518
  5. XGEVA ^FL INJ^ [Concomitant]
     Dosage: 70/1.7 MG/ML, 1X/MONTH
     Route: 065
  6. ABIRATERONE ACETATE. [Suspect]
     Active Substance: ABIRATERONE ACETATE
     Dosage: 500 MG
     Route: 065
  7. BURINEX ^COMP^ [Concomitant]
     Dosage: 1 MG, 1X/DAY
     Route: 065
  8. SPIRONOLACTONE. [Suspect]
     Active Substance: SPIRONOLACTONE
     Indication: BLOOD PRESSURE INCREASED
     Dosage: 25 MG, 1X/DAY
     Route: 048
     Dates: start: 20170607, end: 20170824
  9. BETMIGA ^COMP^ [Concomitant]
     Dosage: 50 MG, 1X/DAY
     Route: 065
  10. SPIRONOLACTONE. [Suspect]
     Active Substance: SPIRONOLACTONE
     Indication: OEDEMA PERIPHERAL
  11. PREDNISONE. [Concomitant]
     Active Substance: PREDNISONE
     Dosage: 10 MG
     Route: 065
     Dates: start: 20180518
  12. ASAFLOW ^COMP^ [Concomitant]
     Dosage: 80 MG, 1X/DAY
     Route: 065
  13. DECAPEPTYL ^SR FR INJ^ [Concomitant]
     Dosage: 22.5 MG + SOLV, 6-MONTHLY
     Route: 065
  14. STEOVIT FORTE [Concomitant]
     Dosage: 1000 MG/800U 1X/DAY
     Route: 065
  15. ALLOPURINOL (TEVA) [Concomitant]
     Dosage: 100 MG, 1X/DAY
     Route: 065
  16. ZYTIGA ^COMP^ [Concomitant]
     Dosage: 250 MG, 4X/DAY
     Route: 065

REACTIONS (2)
  - Drug interaction [Recovered/Resolved]
  - Metastases to bone [Recovering/Resolving]

NARRATIVE: CASE EVENT DATE: 20170824
